FAERS Safety Report 11607671 (Version 6)
Quarter: 2015Q4

REPORT INFORMATION
  Report Type: Report from Study
  Country: US (occurrence: US)
  Receive Date: 20151007
  Receipt Date: 20151208
  Transmission Date: 20160304
  Serious: Yes (Other)
  Sender: FDA-Public Use
  Company Number: US-JNJFOC-20150920981

PATIENT
  Age: 94 Year
  Sex: Female
  Weight: 55 kg

DRUGS (13)
  1. IMBRUVICA [Suspect]
     Active Substance: IBRUTINIB
     Indication: CHRONIC LYMPHOCYTIC LEUKAEMIA
     Route: 048
  2. LEVOTHYROXINE. [Concomitant]
     Active Substance: LEVOTHYROXINE
  3. IMBRUVICA [Suspect]
     Active Substance: IBRUTINIB
     Indication: CHRONIC LYMPHOCYTIC LEUKAEMIA
     Route: 048
     Dates: start: 201507
  4. NORCO [Suspect]
     Active Substance: ACETAMINOPHEN\HYDROCODONE BITARTRATE
     Indication: PRODUCT USED FOR UNKNOWN INDICATION
     Dosage: 5/325 MG
     Route: 048
  5. RITUXAN [Concomitant]
     Active Substance: RITUXIMAB
  6. CRANBERRY. [Concomitant]
     Active Substance: CRANBERRY
     Dosage: 1 TABLET
     Route: 048
  7. IMBRUVICA [Suspect]
     Active Substance: IBRUTINIB
     Indication: CHRONIC LYMPHOCYTIC LEUKAEMIA
     Route: 048
     Dates: start: 20140614, end: 201411
  8. PROMACTA [Suspect]
     Active Substance: ELTROMBOPAG OLAMINE
     Indication: PRODUCT USED FOR UNKNOWN INDICATION
     Route: 048
  9. VITAMIN D [Concomitant]
     Active Substance: CHOLECALCIFEROL
     Route: 048
  10. LOMOTIL [Concomitant]
     Active Substance: ATROPINE SULFATE\DIPHENOXYLATE HYDROCHLORIDE
     Dosage: 1 TABLET
     Route: 048
  11. IMBRUVICA [Suspect]
     Active Substance: IBRUTINIB
     Indication: CHRONIC LYMPHOCYTIC LEUKAEMIA
     Route: 048
     Dates: start: 201505, end: 201505
  12. IMODIUM [Concomitant]
     Active Substance: LOPERAMIDE HYDROCHLORIDE
  13. IMMUNOGLOBULIN G HUMAN [Concomitant]
     Active Substance: HUMAN IMMUNOGLOBULIN G
     Indication: HYPOGAMMAGLOBULINAEMIA
     Route: 042

REACTIONS (19)
  - Depression [Unknown]
  - Urinary tract infection [Unknown]
  - Gastrointestinal haemorrhage [Recovered/Resolved]
  - Fluid retention [Not Recovered/Not Resolved]
  - Pain in extremity [Not Recovered/Not Resolved]
  - Fatigue [Unknown]
  - Infection [Not Recovered/Not Resolved]
  - Haemothorax [Unknown]
  - Haemorrhagic diathesis [Not Recovered/Not Resolved]
  - Leukopenia [Unknown]
  - Pain [Not Recovered/Not Resolved]
  - Burning sensation [Recovering/Resolving]
  - Peripheral swelling [Not Recovered/Not Resolved]
  - Sinusitis [Unknown]
  - Subdural haematoma [Unknown]
  - Drug dose omission [Recovered/Resolved]
  - Inappropriate schedule of drug administration [Unknown]
  - Contusion [Unknown]
  - Haemorrhoidal haemorrhage [Unknown]

NARRATIVE: CASE EVENT DATE: 20140804
